FAERS Safety Report 9656398 (Version 3)
Quarter: 2014Q2

REPORT INFORMATION
  Report Type: Spontaneous
  Country: GB (occurrence: GB)
  Receive Date: 20131030
  Receipt Date: 20140507
  Transmission Date: 20141212
  Serious: Yes (Other)
  Sender: FDA-Public Use
  Company Number: GB-JNJFOC-20130617733

PATIENT
  Age: 56 Year
  Sex: Female

DRUGS (4)
  1. GOLIMUMAB [Suspect]
     Indication: PSORIATIC ARTHROPATHY
     Route: 058
     Dates: start: 20130501
  2. METHOTREXATE [Concomitant]
     Indication: PSORIATIC ARTHROPATHY
     Route: 065
     Dates: start: 20110406
  3. FOLIC ACID [Concomitant]
     Indication: PSORIATIC ARTHROPATHY
     Route: 065
     Dates: start: 20110406
  4. TRAMADOL [Concomitant]
     Indication: ARTHRITIS
     Route: 065
     Dates: start: 2010

REACTIONS (3)
  - Cellulitis [Recovered/Resolved]
  - Infected bites [Recovered/Resolved]
  - Nasopharyngitis [Recovered/Resolved]
